FAERS Safety Report 8025953-4 (Version None)
Quarter: 2012Q1

REPORT INFORMATION
  Report Type: 
  Country: None (occurrence: None)
  Receive Date: 20120105
  Receipt Date: 20110921
  Transmission Date: 20120608
  Serious: No
  Sender: FDA-Public Use
  Company Number: US-ABBOTT-11P-163-0857178-00

PATIENT
  Age: 65 Year
  Sex: Female
  Weight: 72.64 kg

DRUGS (6)
  1. CELECOXIB [Concomitant]
     Indication: ARTHRITIS
     Dosage: AT NIGHT
     Route: 048
  2. SYNTHROID [Suspect]
     Indication: THYROID DISORDER
     Dosage: IN THE MORNING, BEFORE EATING ANYTHING
     Route: 048
  3. GABAPENTIN [Concomitant]
     Indication: PAIN IN EXTREMITY
     Dosage: AT NIGHT
     Route: 048
  4. GABAPENTIN [Concomitant]
     Indication: BURNING SENSATION
  5. CLONAZEPAM [Concomitant]
     Indication: ANXIETY
     Dosage: TWICE DAILY AS NEEDED
     Route: 048
  6. PRISTIQ [Suspect]
     Indication: DEPRESSION
     Dosage: EXTENDED RELEASE TABLETS, ONCE DAILY
     Route: 048

REACTIONS (1)
  - HYPERHIDROSIS [None]
